FAERS Safety Report 12433844 (Version 3)
Quarter: 2020Q3

REPORT INFORMATION
  Report Type: Report from Study
  Country: US (occurrence: US)
  Receive Date: 20160603
  Receipt Date: 20160620
  Transmission Date: 20201105
  Serious: Yes (Hospitalization)
  Sender: FDA-Public Use
  Company Number: US-JNJFOC-20160505756

PATIENT
  Age: 74 Year
  Sex: Female
  Weight: 84.82 kg

DRUGS (20)
  1. XALATAN [Concomitant]
     Active Substance: LATANOPROST
     Dosage: 0.005% ONE DROP INTO BOTH EYES AT BED TIME
     Route: 047
  2. LOSARTAN AND HYDROCHLOROTHIAZIDE [Concomitant]
     Active Substance: HYDROCHLOROTHIAZIDE\LOSARTAN POTASSIUM
     Indication: ESSENTIAL HYPERTENSION
     Route: 048
  3. DOXORUBICIN [Suspect]
     Active Substance: DOXORUBICIN
     Route: 042
  4. ASCORBIC ACID. [Concomitant]
     Active Substance: ASCORBIC ACID
     Route: 048
  5. TRABECTEDIN [Suspect]
     Active Substance: TRABECTEDIN
     Route: 042
  6. TRABECTEDIN [Suspect]
     Active Substance: TRABECTEDIN
     Indication: METASTASES TO PERITONEUM
     Dosage: DAY ONE OF CYCLE
     Route: 042
     Dates: start: 20160421
  7. DESOWEN [Concomitant]
     Active Substance: DESONIDE
     Dosage: 0.05%  , 3 TIMES DAILY AS NEEDED.
     Route: 061
  8. TRUSOPT [Concomitant]
     Active Substance: DORZOLAMIDE HYDROCHLORIDE
     Dosage: ONE DROP INTO BOTH EYES TWICE DAY
     Route: 047
  9. LANTUS [Concomitant]
     Active Substance: INSULIN GLARGINE
     Dosage: 40?50 UNITS AT BED TIME
     Route: 065
  10. SERTRALINE [Concomitant]
     Active Substance: SERTRALINE HYDROCHLORIDE
     Route: 048
  11. DICLOFENAC [Concomitant]
     Active Substance: DICLOFENAC
     Dosage: 4 TIMES PER DAY
     Route: 061
  12. COSOPT [Concomitant]
     Active Substance: DORZOLAMIDE HYDROCHLORIDE\TIMOLOL MALEATE
     Route: 047
  13. ASPIRIN. [Concomitant]
     Active Substance: ASPIRIN
     Route: 048
  14. DOXORUBICIN [Suspect]
     Active Substance: DOXORUBICIN
     Indication: METASTASES TO PERITONEUM
     Dosage: DAY ONE OF CYCLE
     Route: 042
     Dates: start: 20160421
  15. VITAMIN B12 [Concomitant]
     Active Substance: CYANOCOBALAMIN
     Route: 048
  16. AMLODIPINE [Concomitant]
     Active Substance: AMLODIPINE BESYLATE
     Route: 048
  17. METFORMIN [Concomitant]
     Active Substance: METFORMIN HYDROCHLORIDE
     Route: 048
  18. SIMVASTATIN. [Concomitant]
     Active Substance: SIMVASTATIN
     Dosage: AT BED TIME
     Route: 048
  19. INSULIN ASPART [Concomitant]
     Active Substance: INSULIN ASPART
     Route: 065
  20. LASIX [Concomitant]
     Active Substance: FUROSEMIDE
     Route: 048

REACTIONS (1)
  - Dyspepsia [Recovered/Resolved]

NARRATIVE: CASE EVENT DATE: 20160504
